FAERS Safety Report 8812558 (Version 1)
Quarter: 2012Q4

REPORT INFORMATION
  Report Type: 
  Country: ZA (occurrence: ZA)
  Receive Date: 20120927
  Receipt Date: 20120927
  Transmission Date: 20130627
  Serious: Yes (Death, Hospitalization)
  Sender: FDA-Public Use
  Company Number: PHHO2004ZA02485

PATIENT
  Age: 49 Year
  Sex: Female
  Weight: 61 kg

DRUGS (1)
  1. GLIVEC [Suspect]
     Indication: CHRONIC MYELOID LEUKAEMIA
     Route: 048
     Dates: start: 20030619, end: 20031007

REACTIONS (2)
  - Death [Fatal]
  - Blast crisis in myelogenous leukaemia [Unknown]
